FAERS Safety Report 19025917 (Version 1)
Quarter: 2021Q1

REPORT INFORMATION
  Report Type: Spontaneous
  Country: US (occurrence: US)
  Receive Date: 20210316
  Receipt Date: 20210316
  Transmission Date: 20210420
  Serious: Yes (Life-Threatening, Hospitalization)
  Sender: FDA-Public Use
  Company Number: None

PATIENT
  Age: 65 Year
  Sex: Male
  Weight: 72.7 kg

DRUGS (1)
  1. SULFAMETHOXAZOLE/TRIMETHOPRIM [Suspect]
     Active Substance: SULFAMETHOXAZOLE\TRIMETHOPRIM
     Indication: PNEUMONIA
     Route: 048
     Dates: start: 20180822, end: 20180827

REACTIONS (6)
  - Hyperkalaemia [None]
  - Platelet count decreased [None]
  - Acute kidney injury [None]
  - Adverse drug reaction [None]
  - Acute respiratory failure [None]
  - Haematuria [None]

NARRATIVE: CASE EVENT DATE: 20180827
